FAERS Safety Report 5937990-1 (Version None)
Quarter: 2008Q4

REPORT INFORMATION
  Report Type: 
  Country: None (occurrence: None)
  Receive Date: 20081031
  Receipt Date: 20081022
  Transmission Date: 20090506
  Serious: Yes (Death, Other)
  Sender: FDA-Public Use
  Company Number: PL-ROCHE-593438

PATIENT
  Age: 55 Year
  Sex: Male

DRUGS (3)
  1. ROFERON-A [Suspect]
     Indication: METASTATIC RENAL CELL CARCINOMA
     Dosage: ROUTE: SC/IM
     Route: 050
     Dates: start: 20060309, end: 20060601
  2. NON-STEROIDAL ANTI-INFLAMMATORY NOS [Concomitant]
     Dosage: DRUG: NON-STEROIDAL ANTI-INFLAMMATORY DRUGS NOS
     Dates: start: 20060529
  3. MORPHINE [Concomitant]
     Dates: start: 20060603

REACTIONS (2)
  - DEATH [None]
  - GASTROINTESTINAL PERFORATION [None]
